FAERS Safety Report 24426073 (Version 3)
Quarter: 2025Q3

REPORT INFORMATION
  Report Type: Spontaneous
  Country: JP (occurrence: JP)
  Receive Date: 20241011
  Receipt Date: 20250912
  Transmission Date: 20251021
  Serious: Yes (Other)
  Sender: PHARMACOSMOS A/S
  Company Number: JP-NEBO-671414

PATIENT
  Age: 29 Year
  Sex: Female
  Weight: 49.5 kg

DRUGS (1)
  1. FERRIC DERISOMALTOSE [Suspect]
     Active Substance: FERRIC DERISOMALTOSE
     Indication: Iron deficiency anaemia
     Dates: start: 20241003, end: 20241003

REACTIONS (3)
  - Anaphylactic shock [Recovered/Resolved]
  - Oropharyngeal discomfort [Unknown]
  - Sclerema [Recovered/Resolved]

NARRATIVE: CASE EVENT DATE: 20241003
